FAERS Safety Report 25890298 (Version 2)
Quarter: 2025Q4

REPORT INFORMATION
  Report Type: Spontaneous
  Country: US (occurrence: US)
  Receive Date: 20251007
  Receipt Date: 20251111
  Transmission Date: 20260117
  Serious: Yes (Other)
  Sender: ELI LILLY AND COMPANY
  Company Number: US-ELI_LILLY_AND_COMPANY-US202510000188

PATIENT
  Age: 47 Year
  Sex: Male

DRUGS (3)
  1. EMGALITY [Suspect]
     Active Substance: GALCANEZUMAB-GNLM
     Indication: Cluster headache
     Dosage: 300 MG, UNKNOWN
     Route: 058
     Dates: start: 202501
  2. EMGALITY [Suspect]
     Active Substance: GALCANEZUMAB-GNLM
     Dosage: 300 MG, UNKNOWN
     Route: 058
     Dates: start: 202502, end: 202502
  3. EMGALITY [Suspect]
     Active Substance: GALCANEZUMAB-GNLM
     Indication: Cluster headache
     Dosage: 120 MG, UNKNOWN
     Route: 030
     Dates: start: 20250927

REACTIONS (4)
  - Suicidal ideation [Recovering/Resolving]
  - Cluster headache [Not Recovered/Not Resolved]
  - Incorrect route of product administration [Unknown]
  - Off label use [Unknown]

NARRATIVE: CASE EVENT DATE: 20250801
